FAERS Safety Report 9671704 (Version 1)
Quarter: 2013Q4

REPORT INFORMATION
  Report Type: Spontaneous
  Country: US (occurrence: None)
  Receive Date: 20131105
  Receipt Date: 20131105
  Transmission Date: 20140711
  Serious: Yes (Hospitalization)
  Sender: FDA-Public Use
  Company Number: None

PATIENT
  Age: 68 Year
  Sex: Male
  Weight: 96.3 kg

DRUGS (7)
  1. BYDUREON [Suspect]
     Indication: TYPE 2 DIABETES MELLITUS
     Dosage: STARTED 6 WEEKS AGO, BYDUREAON 2MG, ONCE QEEKLY, SUBCUTANEOUS
     Route: 058
  2. LANTUS [Concomitant]
  3. ZETIA [Concomitant]
  4. GEMFIBROZIL [Concomitant]
  5. AMLODIPINE [Concomitant]
  6. HYDROCHLOROTHIAZIDE [Concomitant]
  7. BENAZEPRIL [Concomitant]

REACTIONS (3)
  - Abdominal pain upper [None]
  - Pancreatitis acute [None]
  - Dehydration [None]
